FAERS Safety Report 7344513-1 (Version None)
Quarter: 2011Q1

REPORT INFORMATION
  Report Type: 
  Country: None (occurrence: None)
  Receive Date: 20110310
  Receipt Date: 20110303
  Transmission Date: 20110831
  Serious: Yes (Hospitalization)
  Sender: FDA-Public Use
  Company Number: JP-BRACCO-004465

PATIENT
  Sex: Female
  Weight: 83 kg

DRUGS (5)
  1. IOPAMIDOL [Suspect]
     Indication: TRANSIENT ISCHAEMIC ATTACK
     Dosage: RIGHT ANTECUBITAL VEIN
     Route: 042
     Dates: start: 20101129, end: 20101129
  2. IOPAMIDOL [Suspect]
     Indication: COMPUTERISED TOMOGRAM
     Dosage: RIGHT ANTECUBITAL VEIN
     Route: 042
     Dates: start: 20101129, end: 20101129
  3. IOPAMIDOL [Suspect]
     Indication: CEREBRAL INFARCTION
     Dosage: RIGHT ANTECUBITAL VEIN
     Route: 042
     Dates: start: 20101129, end: 20101129
  4. XANBON [Concomitant]
     Dates: start: 20101129
  5. ASPIRIN [Concomitant]
     Route: 048
     Dates: start: 20101129, end: 20101130

REACTIONS (2)
  - ECZEMA [None]
  - RESPIRATORY TRACT OEDEMA [None]
